FAERS Safety Report 20092342 (Version 7)
Quarter: 2022Q1

REPORT INFORMATION
  Report Type: Report from Study
  Country: US (occurrence: US)
  Receive Date: 20211119
  Receipt Date: 20220331
  Transmission Date: 20220423
  Serious: Yes (Hospitalization, Disabling, Other)
  Sender: FDA-Public Use
  Company Number: US-009507513-1711USA008545

PATIENT
  Sex: Female
  Weight: 171.88 kg

DRUGS (2)
  1. NEXPLANON [Suspect]
     Active Substance: ETONOGESTREL
     Indication: Contraception
     Dosage: 1 IMPLANT (STRENGTH: 68 MG) IN LEFT ARM
     Route: 059
     Dates: start: 20100518, end: 20181212
  2. ELIQUIS [Concomitant]
     Active Substance: APIXABAN
     Dosage: UNK

REACTIONS (35)
  - Menopause [Recovered/Resolved]
  - Chills [Recovered/Resolved]
  - Pelvic inflammatory disease [Recovered/Resolved]
  - Atelectasis [Recovered/Resolved]
  - Pleuritic pain [Recovered/Resolved]
  - Chest pain [Recovered/Resolved]
  - Pelvic pain [Recovered/Resolved]
  - Pulmonary embolism [Recovered/Resolved]
  - Deep vein thrombosis [Recovered/Resolved]
  - Pulmonary embolism [Recovered/Resolved]
  - Haemorrhage [Recovered/Resolved]
  - Pain in extremity [Recovered/Resolved]
  - Exploratory operation [Recovered/Resolved]
  - Dizziness [Recovered/Resolved]
  - Device dislocation [Recovered/Resolved]
  - Asthenia [Recovered/Resolved]
  - Headache [Recovered/Resolved]
  - Pyrexia [Recovered/Resolved]
  - Mood swings [Recovered/Resolved]
  - Headache [Recovered/Resolved]
  - Nausea [Recovered/Resolved]
  - Exposure to communicable disease [Unknown]
  - Gastrooesophageal reflux disease [Recovered/Resolved]
  - Menopause [Recovered/Resolved]
  - Visual impairment [Recovered/Resolved]
  - Illness [Recovered/Resolved]
  - Adverse event [Recovered/Resolved]
  - Migraine [Recovered/Resolved]
  - Blood pressure increased [Recovered/Resolved]
  - Weight increased [Recovered/Resolved]
  - Heavy menstrual bleeding [Recovered/Resolved]
  - Complication associated with device [Recovered/Resolved]
  - Device breakage [Recovered/Resolved]
  - Product dose omission issue [Unknown]
  - Incorrect product administration duration [Unknown]

NARRATIVE: CASE EVENT DATE: 20100101
